FAERS Safety Report 7641949-6 (Version None)
Quarter: 2011Q3

REPORT INFORMATION
  Report Type: 
  Country: None (occurrence: None)
  Receive Date: 20110728
  Receipt Date: 20110702
  Transmission Date: 20111222
  Serious: No
  Sender: FDA-Public Use
  Company Number: US-BAYER-2011-058787

PATIENT
  Sex: Female

DRUGS (3)
  1. ADVIL LIQUI-GELS [Suspect]
     Indication: UNEVALUABLE EVENT
  2. ALEVE (CAPLET) [Suspect]
     Indication: UNEVALUABLE EVENT
     Route: 048
  3. TYLENOL-500 [Suspect]
     Indication: UNEVALUABLE EVENT

REACTIONS (1)
  - NO ADVERSE EVENT [None]
